FAERS Safety Report 16387990 (Version 1)
Quarter: 2019Q2

REPORT INFORMATION
  Report Type: Spontaneous
  Country: BE (occurrence: BE)
  Receive Date: 20190604
  Receipt Date: 20190604
  Transmission Date: 20190711
  Serious: Yes (Other)
  Sender: FDA-Public Use
  Company Number: BE-AUROBINDO-AUR-APL-2019-030574

PATIENT

DRUGS (37)
  1. IMIPENEM [Suspect]
     Active Substance: IMIPENEM
     Indication: CYSTIC FIBROSIS
     Dosage: UNK
     Route: 042
  2. CLOFAZIMINE [Suspect]
     Active Substance: CLOFAZIMINE
     Indication: RESPIRATORY FAILURE
  3. CLOFAZIMINE [Suspect]
     Active Substance: CLOFAZIMINE
     Indication: LUNG INFECTION
  4. CLARITHROMYCIN. [Suspect]
     Active Substance: CLARITHROMYCIN
     Indication: CYSTIC FIBROSIS
  5. MOXIFLOXACIN. [Suspect]
     Active Substance: MOXIFLOXACIN
     Indication: RESPIRATORY FAILURE
  6. CLOFAZIMINE [Suspect]
     Active Substance: CLOFAZIMINE
     Indication: MYCOBACTERIUM ABSCESSUS INFECTION
     Dosage: UNK
     Route: 048
  7. LINEZOLID. [Suspect]
     Active Substance: LINEZOLID
     Indication: BRONCHIECTASIS
  8. MOXIFLOXACIN. [Suspect]
     Active Substance: MOXIFLOXACIN
     Indication: CYSTIC FIBROSIS
  9. IMIPENEM [Suspect]
     Active Substance: IMIPENEM
     Indication: BRONCHIECTASIS
  10. CLARITHROMYCIN. [Suspect]
     Active Substance: CLARITHROMYCIN
     Indication: BRONCHIECTASIS
  11. AMIKACIN. [Suspect]
     Active Substance: AMIKACIN
     Indication: LUNG INFECTION
  12. MOXIFLOXACIN. [Suspect]
     Active Substance: MOXIFLOXACIN
     Indication: BRONCHIECTASIS
  13. IMIPENEM [Suspect]
     Active Substance: IMIPENEM
     Indication: LUNG INFECTION
  14. CLARITHROMYCIN. [Suspect]
     Active Substance: CLARITHROMYCIN
     Indication: RESPIRATORY FAILURE
  15. LINEZOLID. [Suspect]
     Active Substance: LINEZOLID
     Indication: IMMUNOSUPPRESSANT DRUG THERAPY
     Dosage: UNK
     Route: 065
  16. LINEZOLID. [Suspect]
     Active Substance: LINEZOLID
     Indication: MYCOBACTERIUM ABSCESSUS INFECTION
  17. LINEZOLID. [Suspect]
     Active Substance: LINEZOLID
     Indication: LUNG INFECTION
  18. AMIKACIN. [Suspect]
     Active Substance: AMIKACIN
     Indication: RESPIRATORY FAILURE
  19. CLARITHROMYCIN. [Suspect]
     Active Substance: CLARITHROMYCIN
     Indication: MYCOBACTERIUM ABSCESSUS INFECTION
     Dosage: UNK
     Route: 048
  20. CLARITHROMYCIN. [Suspect]
     Active Substance: CLARITHROMYCIN
     Indication: LUNG INFECTION
  21. LINEZOLID. [Suspect]
     Active Substance: LINEZOLID
     Indication: RESPIRATORY FAILURE
  22. AMIKACIN. [Suspect]
     Active Substance: AMIKACIN
     Indication: MYCOBACTERIUM ABSCESSUS INFECTION
     Dosage: UNK
     Route: 042
  23. AMIKACIN. [Suspect]
     Active Substance: AMIKACIN
     Indication: BRONCHIECTASIS
  24. MOXIFLOXACIN. [Suspect]
     Active Substance: MOXIFLOXACIN
     Indication: LUNG INFECTION
  25. TIGECYCLINE. [Suspect]
     Active Substance: TIGECYCLINE
     Indication: MYCOBACTERIUM ABSCESSUS INFECTION
     Dosage: UNK
     Route: 042
  26. TIGECYCLINE. [Suspect]
     Active Substance: TIGECYCLINE
     Indication: RESPIRATORY FAILURE
  27. TIGECYCLINE. [Suspect]
     Active Substance: TIGECYCLINE
     Indication: BRONCHIECTASIS
  28. TIGECYCLINE. [Suspect]
     Active Substance: TIGECYCLINE
     Indication: LUNG INFECTION
  29. IMIPENEM [Suspect]
     Active Substance: IMIPENEM
     Indication: MYCOBACTERIUM ABSCESSUS INFECTION
  30. CLOFAZIMINE [Suspect]
     Active Substance: CLOFAZIMINE
     Indication: CYSTIC FIBROSIS
  31. BEDAQUILINE [Suspect]
     Active Substance: BEDAQUILINE
     Indication: PRODUCT USED FOR UNKNOWN INDICATION
     Dosage: UNK
     Route: 065
  32. TIGECYCLINE. [Suspect]
     Active Substance: TIGECYCLINE
     Indication: CYSTIC FIBROSIS
  33. IMIPENEM [Suspect]
     Active Substance: IMIPENEM
     Indication: RESPIRATORY FAILURE
  34. LINEZOLID. [Suspect]
     Active Substance: LINEZOLID
     Indication: CYSTIC FIBROSIS
  35. MOXIFLOXACIN. [Suspect]
     Active Substance: MOXIFLOXACIN
     Indication: MYCOBACTERIAL INFECTION
     Dosage: UNK
     Route: 048
  36. CLOFAZIMINE [Suspect]
     Active Substance: CLOFAZIMINE
     Indication: BRONCHIECTASIS
  37. TACROLIMUS. [Suspect]
     Active Substance: TACROLIMUS
     Indication: IMMUNOSUPPRESSANT DRUG THERAPY
     Dosage: UNK
     Route: 065

REACTIONS (4)
  - Hepatotoxicity [Unknown]
  - Nausea [Unknown]
  - Vomiting [Unknown]
  - Toxicity to various agents [Unknown]
